FAERS Safety Report 8582218-X (Version None)
Quarter: 2012Q3

REPORT INFORMATION
  Report Type: 
  Country: None (occurrence: None)
  Receive Date: 20120809
  Receipt Date: 20120724
  Transmission Date: 20120928
  Serious: No
  Sender: FDA-Public Use
  Company Number: US-ASTRAZENECA-2012SE52374

PATIENT
  Age: 61 Year
  Sex: Female
  Weight: 63.5 kg

DRUGS (16)
  1. AMTURNIDE [Concomitant]
     Indication: HYPERTENSION
  2. AMBIEN [Concomitant]
     Indication: SLEEP DISORDER
  3. HYOSCYAMINE SULFATE [Concomitant]
     Indication: ABDOMINAL PAIN
  4. POTASSIUM [Concomitant]
     Indication: BLOOD POTASSIUM DECREASED
  5. KLONOPIN [Concomitant]
     Indication: NERVOUSNESS
  6. PROZAC [Concomitant]
     Indication: DEPRESSION
  7. FISH OIL [Concomitant]
  8. VERAPAMIL [Concomitant]
     Indication: HYPERTENSION
  9. NEXIUM [Suspect]
     Route: 048
     Dates: start: 20120509, end: 20120701
  10. NEXIUM [Suspect]
     Route: 048
     Dates: start: 20120701
  11. ZOCOR [Concomitant]
     Indication: BLOOD CHOLESTEROL INCREASED
  12. FIORINAL [Concomitant]
     Indication: MIGRAINE
  13. PRILOSEC [Suspect]
     Indication: GASTRIC DISORDER
     Dosage: DAILY
     Route: 048
     Dates: start: 20020101, end: 20120509
  14. HYDRALAZINE HCL [Concomitant]
     Indication: HYPERTENSION
  15. TOVIAZ [Concomitant]
     Indication: URINARY INCONTINENCE
  16. ZOFRAN [Concomitant]
     Indication: NAUSEA

REACTIONS (9)
  - WEIGHT DECREASED [None]
  - GALLBLADDER DISORDER [None]
  - NAUSEA [None]
  - CHEST PAIN [None]
  - ABDOMINAL PAIN UPPER [None]
  - INTENTIONAL DRUG MISUSE [None]
  - GASTROINTESTINAL MOTILITY DISORDER [None]
  - DECREASED APPETITE [None]
  - DRUG INEFFECTIVE [None]
